FAERS Safety Report 13323329 (Version 1)
Quarter: 2017Q1

REPORT INFORMATION
  Report Type: Spontaneous
  Country: US (occurrence: US)
  Receive Date: 20170310
  Receipt Date: 20170310
  Transmission Date: 20170428
  Serious: Yes (Other)
  Sender: FDA-Public Use
  Company Number: US-BAYER-2017-045087

PATIENT
  Sex: Female

DRUGS (1)
  1. MIRENA [Suspect]
     Active Substance: LEVONORGESTREL
     Dosage: 20 MCG/24HR, CONT
     Route: 015
     Dates: start: 2010, end: 20161206

REACTIONS (6)
  - Genital haemorrhage [None]
  - Device dislocation [None]
  - Device use issue [None]
  - Malaise [None]
  - Abdominal pain lower [None]
  - Patient dissatisfaction with treatment [None]

NARRATIVE: CASE EVENT DATE: 2010
